FAERS Safety Report 10655907 (Version 1)
Quarter: 2014Q4

REPORT INFORMATION
  Report Type: Spontaneous
  Country: TR (occurrence: TR)
  Receive Date: 20141216
  Receipt Date: 20141216
  Transmission Date: 20150529
  Serious: Yes (Life-Threatening, Other)
  Sender: FDA-Public Use
  Company Number: TR-PFIZER INC-2014340912

PATIENT
  Age: 10 Year
  Sex: Male

DRUGS (2)
  1. CARBAMAZEPINE. [Suspect]
     Active Substance: CARBAMAZEPINE
     Indication: SEIZURE
     Dosage: UNK
  2. PHENYTOIN SODIUM. [Suspect]
     Active Substance: PHENYTOIN SODIUM
     Indication: SEIZURE
     Dosage: 5 MG/KG, DAILY (IN TWO DIVIDED DOSES)

REACTIONS (10)
  - Ecchymosis [Unknown]
  - Thrombocytopenia [Recovered/Resolved]
  - Megakaryocytes decreased [Unknown]
  - Epistaxis [Unknown]
  - Rash erythematous [Unknown]
  - Haemorrhage [Unknown]
  - Purpura [Unknown]
  - Skin lesion [Unknown]
  - Haemoglobin decreased [Unknown]
  - Petechiae [Unknown]
